FAERS Safety Report 4530280-3 (Version None)
Quarter: 2004Q4

REPORT INFORMATION
  Report Type: 
  Country: None (occurrence: None)
  Receive Date: 20041217
  Receipt Date: 20041105
  Transmission Date: 20050328
  Serious: Yes (Hospitalization, Other)
  Sender: FDA-Public Use
  Company Number: US-MERCK-0411USA00948

PATIENT
  Age: 59 Year
  Sex: Female
  Weight: 56 kg

DRUGS (7)
  1. VIOXX [Suspect]
     Indication: OSTEOARTHRITIS
     Route: 048
     Dates: start: 20010613, end: 20041007
  2. PREVACID [Concomitant]
     Indication: GASTROOESOPHAGEAL REFLUX DISEASE
     Route: 065
     Dates: start: 20030101
  3. LIPITOR [Concomitant]
     Indication: BLOOD CHOLESTEROL INCREASED
     Route: 065
     Dates: start: 20040224
  4. LIPITOR [Concomitant]
     Route: 065
     Dates: start: 20040224
  5. PLETAL [Concomitant]
     Indication: INTERMITTENT CLAUDICATION
     Route: 065
     Dates: start: 20040213
  6. VITAMINS (UNSPECIFIED) [Concomitant]
     Route: 048
     Dates: start: 20020101
  7. COLACE [Concomitant]
     Route: 065
     Dates: start: 20020101

REACTIONS (2)
  - DYSPHAGIA [None]
  - TRANSIENT ISCHAEMIC ATTACK [None]
